FAERS Safety Report 7281808-4 (Version None)
Quarter: 2011Q1

REPORT INFORMATION
  Report Type: 
  Country: None (occurrence: None)
  Receive Date: 20110208
  Receipt Date: 20110131
  Transmission Date: 20110831
  Serious: Yes (Death, Disabling)
  Sender: FDA-Public Use
  Company Number: JP-AMGEN-JPNCT2010009640

PATIENT
  Age: 70 Year
  Sex: Male
  Weight: 47 kg

DRUGS (22)
  1. OXINORM [Concomitant]
     Dosage: UNK
     Route: 048
  2. CORTICOSTEROIDS [Concomitant]
     Indication: PROPHYLAXIS
     Dosage: UNK
     Route: 065
  3. FLAVERIC [Concomitant]
     Dosage: UNK
     Route: 048
  4. GLYBURIDE [Concomitant]
     Dosage: UNK
     Route: 048
  5. PANITUMUMAB [Suspect]
     Indication: COLORECTAL CANCER
     Dosage: 6 MG/KG, Q2WK
     Route: 041
     Dates: start: 20100721, end: 20100909
  6. NOVAMIN [Concomitant]
     Dosage: UNK
     Route: 048
  7. KENALOG [Concomitant]
     Dosage: UNK
     Route: 048
  8. FUCIDIN LEO OINTMENT [Concomitant]
     Dosage: UNK
     Route: 062
  9. FULMETA [Concomitant]
     Dosage: UNK
     Route: 062
  10. PRIMPERAN TAB [Concomitant]
     Dosage: UNK
     Route: 048
  11. PARIET [Concomitant]
     Dosage: UNK
     Route: 048
  12. LOXONIN TAPE [Concomitant]
     Dosage: UNK
     Route: 062
  13. BASEN OD TABLETS 0.3 [Concomitant]
     Dosage: UNK
     Route: 048
  14. HIRUDOID SOFT OINTMENT [Concomitant]
     Dosage: UNK
     Route: 062
  15. VALTREX [Concomitant]
     Dosage: UNK
     Route: 048
  16. CALCIUM LEVOFOLINATE [Concomitant]
     Indication: COLORECTAL CANCER
     Route: 041
     Dates: start: 20100721, end: 20100909
  17. DEXART [Concomitant]
     Dosage: UNK
     Route: 042
  18. OXALIPLATIN [Concomitant]
     Indication: COLORECTAL CANCER
     Route: 041
     Dates: start: 20100721, end: 20100909
  19. GRANISETRON HCL [Concomitant]
     Dosage: UNK
     Route: 042
  20. ACTOS [Concomitant]
     Dosage: UNK
     Route: 048
  21. FLUOROURACIL [Concomitant]
     Indication: COLORECTAL CANCER
     Route: 041
     Dates: start: 20100721, end: 20100909
  22. DISOPYRAMIDE PHOSPHATE [Concomitant]
     Dosage: UNK
     Route: 048

REACTIONS (10)
  - BLOOD ALKALINE PHOSPHATASE INCREASED [None]
  - HERPES ZOSTER [None]
  - GAMMA-GLUTAMYLTRANSFERASE INCREASED [None]
  - BLOOD LACTATE DEHYDROGENASE INCREASED [None]
  - COLORECTAL CANCER [None]
  - ASPARTATE AMINOTRANSFERASE INCREASED [None]
  - HEPATIC FUNCTION ABNORMAL [None]
  - METASTASES TO LIVER [None]
  - NEOPLASM MALIGNANT [None]
  - ALANINE AMINOTRANSFERASE INCREASED [None]
